FAERS Safety Report 25572422 (Version 1)
Quarter: 2025Q3

REPORT INFORMATION
  Report Type: Spontaneous
  Country: US (occurrence: None)
  Receive Date: 20250717
  Receipt Date: 20250717
  Transmission Date: 20251020
  Serious: Yes (Other)
  Sender: FDA-CTU
  Company Number: None

PATIENT
  Sex: Female
  Weight: 58.97 kg

DRUGS (1)
  1. SUBOXONE [Suspect]
     Active Substance: BUPRENORPHINE HYDROCHLORIDE\NALOXONE HYDROCHLORIDE

REACTIONS (10)
  - Seizure [None]
  - Panic attack [None]
  - Nightmare [None]
  - Dyspnoea [None]
  - Hepatitis [None]
  - Withdrawal syndrome [None]
  - Dental caries [None]
  - Pain [None]
  - Suicide attempt [None]
  - Drug use disorder [None]

NARRATIVE: CASE EVENT DATE: 20250717
